FAERS Safety Report 11318049 (Version 3)
Quarter: 2015Q3

REPORT INFORMATION
  Report Type: Spontaneous
  Country: JP (occurrence: JP)
  Receive Date: 20150728
  Receipt Date: 20150803
  Transmission Date: 20151125
  Serious: Yes (Hospitalization)
  Sender: FDA-Public Use
  Company Number: JP-BAYER-2015-386842

PATIENT
  Age: 76 Year
  Sex: Female

DRUGS (6)
  1. ACETYLSALICYLIC ACID({=100 MG) [Suspect]
     Active Substance: ASPIRIN
     Dosage: UNK
     Route: 048
  2. UFT [Concomitant]
     Active Substance: TEGAFUR\URACIL
     Indication: COLON NEOPLASM
     Route: 048
  3. LEUCOVORIN. [Concomitant]
     Active Substance: LEUCOVORIN
     Indication: COLON NEOPLASM
  4. FUROSEMIDE. [Concomitant]
     Active Substance: FUROSEMIDE
     Dosage: UNK
     Route: 048
  5. XARELTO [Suspect]
     Active Substance: RIVAROXABAN
     Dosage: UNK
     Route: 048
  6. LANSOPRAZOLE. [Concomitant]
     Active Substance: LANSOPRAZOLE
     Dosage: UNK
     Route: 048

REACTIONS (2)
  - Melaena [Recovered/Resolved]
  - Anaemia [Recovered/Resolved]
